FAERS Safety Report 17451024 (Version 1)
Quarter: 2020Q1

REPORT INFORMATION
  Report Type: Report from Study
  Country: US (occurrence: US)
  Receive Date: 20200224
  Receipt Date: 20200224
  Transmission Date: 20200409
  Serious: Yes (Death, Life-Threatening, Hospitalization, Other)
  Sender: FDA-Public Use
  Company Number: US-ROCHE-2549617

PATIENT
  Sex: Female

DRUGS (5)
  1. DURVALUMAB. [Suspect]
     Active Substance: DURVALUMAB
     Indication: LUNG NEOPLASM MALIGNANT
     Route: 065
  2. ATEZOLIZUMAB. [Suspect]
     Active Substance: ATEZOLIZUMAB
     Indication: SMALL CELL LUNG CANCER
     Route: 065
  3. IPILIMUMAB [Suspect]
     Active Substance: IPILIMUMAB
     Indication: LUNG NEOPLASM MALIGNANT
     Route: 065
  4. NIVOLUMAB [Suspect]
     Active Substance: NIVOLUMAB
     Indication: LUNG NEOPLASM MALIGNANT
     Route: 065
  5. PEMBROLIZUMAB. [Suspect]
     Active Substance: PEMBROLIZUMAB
     Indication: LUNG NEOPLASM MALIGNANT
     Route: 065

REACTIONS (12)
  - Cardiac death [Fatal]
  - Chest pain [Unknown]
  - Cardiac failure [Unknown]
  - Brain natriuretic peptide increased [Unknown]
  - Myocardial infarction [Unknown]
  - Myocarditis [Unknown]
  - Troponin increased [Unknown]
  - Cardiac arrest [Unknown]
  - Cardiac valve disease [Unknown]
  - Cerebrovascular accident [Unknown]
  - Arrhythmia [Unknown]
  - Cardiomyopathy [Unknown]
